FAERS Safety Report 20777316 (Version 1)
Quarter: 2022Q2

REPORT INFORMATION
  Report Type: Spontaneous
  Country: IL (occurrence: IL)
  Receive Date: 20220503
  Receipt Date: 20220503
  Transmission Date: 20220720
  Serious: Yes (Other)
  Sender: FDA-Public Use
  Company Number: IL-SA-SAC20220427002058

PATIENT
  Age: 49 Year
  Sex: Female

DRUGS (5)
  1. PLAVIX [Suspect]
     Active Substance: CLOPIDOGREL BISULFATE
  2. VIT D [VITAMIN D NOS] [Concomitant]
  3. CARTIA XT [Concomitant]
     Active Substance: DILTIAZEM HYDROCHLORIDE
  4. NEXIUM I.V. [Concomitant]
     Active Substance: ESOMEPRAZOLE SODIUM
  5. FABRAZYME [Concomitant]
     Active Substance: AGALSIDASE BETA
     Indication: Fabry^s disease

REACTIONS (4)
  - Cerebrovascular accident [Recovering/Resolving]
  - Muscular weakness [Recovering/Resolving]
  - Facial paralysis [Recovering/Resolving]
  - Speech disorder [Recovering/Resolving]

NARRATIVE: CASE EVENT DATE: 20220414
